FAERS Safety Report 9680802 (Version 2)
Quarter: 2013Q4

REPORT INFORMATION
  Report Type: Spontaneous
  Country: JP (occurrence: JP)
  Receive Date: 20131111
  Receipt Date: 20131118
  Transmission Date: 20140711
  Serious: Yes (Other)
  Sender: FDA-Public Use
  Company Number: PHHY2013JP127198

PATIENT
  Age: 76 Year
  Sex: Female

DRUGS (1)
  1. ZOLEDRONATE [Suspect]
     Indication: BREAST CANCER

REACTIONS (4)
  - Osteonecrosis of jaw [Recovered/Resolved]
  - Erythema [Recovered/Resolved]
  - Gingival erythema [Recovered/Resolved]
  - Purulent discharge [Recovered/Resolved]
